FAERS Safety Report 15123639 (Version 1)
Quarter: 2018Q3

REPORT INFORMATION
  Report Type: Report from Study
  Country: None (occurrence: DE)
  Receive Date: 20180710
  Receipt Date: 20180710
  Transmission Date: 20181010
  Serious: Yes (Hospitalization)
  Sender: FDA-Public Use
  Company Number: DE-ABBVIE-18K-062-2412394-00

PATIENT
  Age: 46 Year
  Sex: Male

DRUGS (4)
  1. BUDENOFALK [Concomitant]
     Active Substance: BUDESONIDE
     Indication: PRODUCT USED FOR UNKNOWN INDICATION
     Dates: start: 2015
  2. SALOFALK [Concomitant]
     Active Substance: MESALAMINE
     Indication: PRODUCT USED FOR UNKNOWN INDICATION
     Dates: start: 2002
  3. PANTOPRAZOL [Concomitant]
     Active Substance: PANTOPRAZOLE SODIUM
     Indication: PRODUCT USED FOR UNKNOWN INDICATION
     Dates: start: 2017
  4. HUMIRA [Suspect]
     Active Substance: ADALIMUMAB
     Indication: CROHN^S DISEASE
     Route: 058
     Dates: start: 201609

REACTIONS (11)
  - Skin atrophy [Not Recovered/Not Resolved]
  - Gastroenteritis viral [Recovered/Resolved]
  - Folate deficiency [Unknown]
  - Stress [Unknown]
  - Visual impairment [Not Recovered/Not Resolved]
  - Headache [Not Recovered/Not Resolved]
  - Suicidal ideation [Recovering/Resolving]
  - Fluid intake reduced [Unknown]
  - Contusion [Not Recovered/Not Resolved]
  - Insomnia [Unknown]
  - Hypophagia [Unknown]

NARRATIVE: CASE EVENT DATE: 201801
